FAERS Safety Report 6067675-5 (Version None)
Quarter: 2009Q1

REPORT INFORMATION
  Report Type: 
  Country: None (occurrence: None)
  Receive Date: 20090205
  Receipt Date: 20090126
  Transmission Date: 20090719
  Serious: Yes (Other)
  Sender: FDA-Public Use
  Company Number: IE-PFIZER INC-2009164292

PATIENT

DRUGS (1)
  1. CABASER [Suspect]
     Route: 048

REACTIONS (2)
  - DELUSION [None]
  - PARANOIA [None]
